FAERS Safety Report 21706762 (Version 2)
Quarter: 2023Q1

REPORT INFORMATION
  Report Type: Spontaneous
  Country: US (occurrence: US)
  Receive Date: 20221209
  Receipt Date: 20230221
  Transmission Date: 20230417
  Serious: Yes (Death)
  Sender: FDA-Public Use
  Company Number: US-PFIZER INC-PV202200118823

PATIENT
  Age: 60 Year
  Sex: Female

DRUGS (1)
  1. ZIRABEV [Suspect]
     Active Substance: BEVACIZUMAB-BVZR
     Dosage: UNK

REACTIONS (1)
  - Death [Fatal]
